FAERS Safety Report 15616779 (Version 1)
Quarter: 2018Q4

REPORT INFORMATION
  Report Type: Spontaneous
  Country: CO (occurrence: CO)
  Receive Date: 20181114
  Receipt Date: 20181114
  Transmission Date: 20190205
  Serious: Yes (Other)
  Sender: FDA-Public Use
  Company Number: CO-BAYER-2018-185199

PATIENT
  Age: 34 Year
  Sex: Female

DRUGS (1)
  1. ULTRAVIST? 300 [Suspect]
     Active Substance: IOPROMIDE
     Indication: UROGRAM
     Dosage: UNK, ONCE
     Dates: start: 20180912, end: 20180912

REACTIONS (2)
  - Abortion [None]
  - Maternal exposure during pregnancy [Unknown]

NARRATIVE: CASE EVENT DATE: 20180912
